FAERS Safety Report 6508272-4 (Version None)
Quarter: 2009Q4

REPORT INFORMATION
  Report Type: 
  Country: None (occurrence: None)
  Receive Date: 20091221
  Receipt Date: 20090324
  Transmission Date: 20100525
  Serious: No
  Sender: FDA-Public Use
  Company Number: US-ASTRAZENECA-2008UW09798

PATIENT
  Age: 75 Year
  Sex: Female
  Weight: 81.6 kg

DRUGS (10)
  1. CRESTOR [Suspect]
     Indication: BLOOD CHOLESTEROL
     Route: 048
     Dates: start: 20040101
  2. CRESTOR [Suspect]
     Route: 048
     Dates: start: 20040101
  3. HYZAAR [Concomitant]
  4. ATENOLOL [Concomitant]
     Route: 048
  5. GUANFACINE HYDROCHLORIDE [Concomitant]
  6. POTASSIUM/CHLOR [Concomitant]
  7. NEXIUM [Concomitant]
     Route: 048
  8. FEXOFENADINE [Concomitant]
  9. ASPIRIN [Concomitant]
  10. MULTI-VITAMINS [Concomitant]

REACTIONS (9)
  - ABDOMINAL PAIN [None]
  - ARTHRITIS [None]
  - CHEST PAIN [None]
  - LIMB INJURY [None]
  - LIVER DISORDER [None]
  - LIVER INJURY [None]
  - MUSCULOSKELETAL PAIN [None]
  - MUSCULOSKELETAL STIFFNESS [None]
  - OEDEMA PERIPHERAL [None]
